FAERS Safety Report 4755612-2 (Version None)
Quarter: 2005Q3

REPORT INFORMATION
  Report Type: 
  Country: None (occurrence: None)
  Receive Date: 20050830
  Receipt Date: 20050601
  Transmission Date: 20060218
  Serious: No
  Sender: FDA-Public Use
  Company Number: US-BRISTOL-MYERS SQUIBB COMPANY-12990073

PATIENT
  Age: 8 Year
  Sex: Male
  Weight: 32 kg

DRUGS (1)
  1. ABILIFY [Suspect]
     Indication: AUTISM
     Dosage: ONE-5 MG TABLET EVERY OTHER DAY ALTERNATING WITH ONE-HALF-5 MG TABLET EVERY OTHER DAY.
     Dates: start: 20050201

REACTIONS (2)
  - CONSTIPATION [None]
  - FAECALOMA [None]
